FAERS Safety Report 10378360 (Version 1)
Quarter: 2014Q1

REPORT INFORMATION
  Report Type: Spontaneous
  Country: US (occurrence: None)
  Receive Date: 20140306
  Receipt Date: 20140306
  Transmission Date: 20141002
  Serious: Yes (Other)
  Sender: FDA-Public Use
  Company Number: 163-21880-13014680

PATIENT
  Age: 50 Year
  Sex: Male

DRUGS (4)
  1. REVLIMID (LENALIDOMIDE) (25 MILLIGRAM, CAPSULES) [Suspect]
     Indication: PLASMA CELL MYELOMA
     Route: 048
     Dates: start: 200911
  2. METHIMAZOLE [Concomitant]
  3. VITAMIN C (ASCORBIC ACID) [Concomitant]
  4. ZOMETA (ZOLENDRONIC ACID) [Concomitant]

REACTIONS (2)
  - Back pain [None]
  - Back disorder [None]
